FAERS Safety Report 17871227 (Version 1)
Quarter: 2020Q2

REPORT INFORMATION
  Report Type: Spontaneous
  Country: US (occurrence: US)
  Receive Date: 20200608
  Receipt Date: 20200608
  Transmission Date: 20200714
  Serious: No
  Sender: FDA-Public Use
  Company Number: None

PATIENT
  Age: 73 Year
  Sex: Male
  Weight: 90.68 kg

DRUGS (9)
  1. LIPITOR [Concomitant]
     Active Substance: ATORVASTATIN CALCIUM
  2. METHOTREXATE. [Concomitant]
     Active Substance: METHOTREXATE
  3. IBUPROFEN. [Concomitant]
     Active Substance: IBUPROFEN
  4. FISH OIL [Concomitant]
     Active Substance: FISH OIL
  5. HYDROCORTISONE. [Suspect]
     Active Substance: HYDROCORTISONE
     Indication: PROSTATE CANCER
     Dates: start: 20180223, end: 20200608
  6. ABIRATERONE. [Suspect]
     Active Substance: ABIRATERONE ACETATE
     Indication: PROSTATE CANCER
     Dates: start: 20190215, end: 20200608
  7. FINASTERIDE. [Concomitant]
     Active Substance: FINASTERIDE
  8. TURMERIC [Concomitant]
     Active Substance: HERBALS\TURMERIC
  9. LORATADINE. [Concomitant]
     Active Substance: LORATADINE

REACTIONS (1)
  - Disease progression [None]

NARRATIVE: CASE EVENT DATE: 20200608
